FAERS Safety Report 8882695 (Version 1)
Quarter: 2012Q4

REPORT INFORMATION
  Report Type: 
  Country: US (occurrence: US)
  Receive Date: 20121102
  Receipt Date: 20121102
  Transmission Date: 20130627
  Serious: Yes (Hospitalization)
  Sender: FDA-Public Use
  Company Number: PHEH2012US021311

PATIENT
  Sex: Female

DRUGS (9)
  1. RECLAST [Suspect]
     Indication: OSTEOPOROSIS
     Route: 042
     Dates: start: 20121024
  2. AMBIEN [Concomitant]
     Dosage: UNK UKN, UNK
  3. ZANTAC [Concomitant]
     Dosage: UNK UKN, UNK
  4. CALCIUM [Concomitant]
     Dosage: UNK UKN, UNK
  5. VITAMIN D [Concomitant]
     Dosage: UNK UKN, UNK
  6. MORPHINE [Concomitant]
     Dosage: UNK UKN, UNK
  7. DILAUDID [Concomitant]
     Dosage: UNK UKN, UNK
  8. NAUSEA MEDICATION [Concomitant]
     Dosage: UNK UKN, UNK
  9. PEPCID AC [Concomitant]
     Dosage: UNK UKN, UNK

REACTIONS (11)
  - Chest pain [Not Recovered/Not Resolved]
  - Nausea [Not Recovered/Not Resolved]
  - Feeling abnormal [Unknown]
  - Insomnia [Unknown]
  - Chills [Unknown]
  - Pyrexia [Unknown]
  - Myalgia [Unknown]
  - Arthralgia [Unknown]
  - Vomiting [Unknown]
  - Diarrhoea [Unknown]
  - Bone pain [Unknown]
